FAERS Safety Report 5149859-3 (Version None)
Quarter: 2006Q4

REPORT INFORMATION
  Report Type: 
  Country: None (occurrence: None)
  Receive Date: 20061113
  Receipt Date: 20061101
  Transmission Date: 20070319
  Serious: Yes (Other)
  Sender: FDA-Public Use
  Company Number: PHBS2006BR17202

PATIENT
  Age: 56 Year
  Sex: Female
  Weight: 40 kg

DRUGS (4)
  1. TRILEPTAL [Suspect]
     Indication: EPILEPSY
     Dosage: 300 MG, TID
     Route: 048
     Dates: start: 20060901, end: 20061029
  2. TRILEPTAL [Suspect]
     Dosage: 300 MG, BID
     Route: 048
     Dates: start: 20061030, end: 20061031
  3. TRILEPTAL [Suspect]
     Dosage: 300 MG, QD
     Route: 048
     Dates: start: 20061101
  4. PROPRANOLOL HCL [Concomitant]
     Indication: MITRAL VALVE PROLAPSE
     Dosage: 10 MG, QD
     Route: 048
     Dates: start: 20030101

REACTIONS (11)
  - BLOOD SODIUM DECREASED [None]
  - CONFUSIONAL STATE [None]
  - DEPRESSION [None]
  - DIZZINESS [None]
  - FEELING ABNORMAL [None]
  - GASTROINTESTINAL DISORDER [None]
  - HEADACHE [None]
  - NAUSEA [None]
  - STOMACH DISCOMFORT [None]
  - VOMITING [None]
  - WEIGHT DECREASED [None]
